FAERS Safety Report 8356645 (Version 2)
Quarter: 2012Q4

REPORT INFORMATION
  Report Type: 
  Country: JP (occurrence: JP)
  Receive Date: 20120126
  Receipt Date: 20121219
  Transmission Date: 20130627
  Serious: Yes (Hospitalization)
  Sender: FDA-Public Use
  Company Number: JP-GLAXOSMITHKLINE-B0681032A

PATIENT
  Age: 11 Year
  Sex: Male

DRUGS (43)
  1. ATARAX [Suspect]
     Indication: DIURETIC THERAPY
     Dosage: 25MG per day
     Route: 042
     Dates: start: 20100709, end: 20100709
  2. ULTIVA [Suspect]
     Indication: PRODUCT USED FOR UNKNOWN INDICATION
     Route: 042
     Dates: start: 20100621, end: 20100708
  3. GASTER [Suspect]
     Indication: PRODUCT USED FOR UNKNOWN INDICATION
     Route: 048
     Dates: start: 20100626, end: 20100715
  4. GASTER [Suspect]
     Indication: PRODUCT USED FOR UNKNOWN INDICATION
     Route: 042
     Dates: start: 20100617, end: 20100626
  5. DORMICUM [Suspect]
     Indication: PRODUCT USED FOR UNKNOWN INDICATION
     Dosage: 10MG per day
     Route: 042
     Dates: start: 20100617
  6. PHENOBARBITAL [Suspect]
     Indication: PRODUCT USED FOR UNKNOWN INDICATION
     Dosage: 50MG Twice per day
     Route: 048
     Dates: start: 20100622, end: 20100709
  7. CERCINE [Suspect]
     Indication: PRODUCT USED FOR UNKNOWN INDICATION
     Route: 048
     Dates: start: 20100622
  8. VICCILLIN [Suspect]
     Indication: PRODUCT USED FOR UNKNOWN INDICATION
     Dosage: 375MG Four times per day
     Route: 065
     Dates: start: 20100715
  9. TAKEPRON [Suspect]
     Indication: PRODUCT USED FOR UNKNOWN INDICATION
     Dosage: 7.5MG Twice per day
     Route: 048
     Dates: start: 20100628, end: 20100728
  10. ROCEPHIN [Suspect]
     Indication: INFECTION
     Dosage: 2000MG per day
     Route: 042
     Dates: start: 20100630, end: 20100707
  11. BIOFERMIN R [Suspect]
     Indication: PRODUCT USED FOR UNKNOWN INDICATION
     Route: 048
     Dates: start: 20100711, end: 20100718
  12. RISPERDAL [Suspect]
     Indication: PRODUCT USED FOR UNKNOWN INDICATION
     Dosage: .3ML per day
     Route: 048
     Dates: start: 20100702, end: 20100714
  13. CALONAL [Suspect]
     Indication: PYREXIA
     Dosage: 300MG per day
     Route: 048
     Dates: start: 20100627, end: 20100716
  14. CLINDAMYCIN PHOSPHATE [Suspect]
     Indication: PRODUCT USED FOR UNKNOWN INDICATION
     Dosage: 100MG Three times per day
     Route: 042
     Dates: start: 20100608, end: 20100710
  15. PIPERACILLIN [Suspect]
     Indication: PRODUCT USED FOR UNKNOWN INDICATION
     Dosage: 375MG Four times per day
     Route: 042
     Dates: start: 20100715, end: 20100716
  16. BIOFERMIN [Suspect]
     Indication: PRODUCT USED FOR UNKNOWN INDICATION
     Route: 048
     Dates: start: 20100711, end: 20100718
  17. MORPHINE HYDROCHLORIDE [Suspect]
     Indication: PRODUCT USED FOR UNKNOWN INDICATION
     Dosage: 2MGK per day
     Route: 042
     Dates: start: 20100621, end: 20100709
  18. LASIX [Suspect]
     Indication: PRODUCT USED FOR UNKNOWN INDICATION
     Dosage: 2.5MG Four times per day
     Route: 048
     Dates: start: 20100626, end: 20100706
  19. ALDACTONE-A [Suspect]
     Indication: DIURETIC THERAPY
     Route: 048
     Dates: start: 20100626, end: 20100706
  20. LACTOBACILLUS ACIDOPHILUS [Suspect]
     Indication: PRODUCT USED FOR UNKNOWN INDICATION
     Dosage: 500MG Three times per day
     Route: 048
     Dates: start: 20100702, end: 20100709
  21. DEPAS [Suspect]
     Indication: PRODUCT USED FOR UNKNOWN INDICATION
     Route: 048
     Dates: start: 20100701, end: 20100701
  22. TRICLOFOS [Suspect]
     Indication: PRODUCT USED FOR UNKNOWN INDICATION
     Dosage: 20ML per day
     Route: 048
     Dates: start: 20100628, end: 20100705
  23. LAXOBERON [Suspect]
     Indication: PRODUCT USED FOR UNKNOWN INDICATION
     Dosage: 10ML per day
     Route: 065
     Dates: start: 20100620, end: 20100620
  24. OMEPRAL [Suspect]
     Indication: PRODUCT USED FOR UNKNOWN INDICATION
     Dosage: 7.5MG Twice per day
     Route: 042
     Dates: start: 20100716, end: 20100721
  25. HEPARIN SODIUM [Suspect]
     Indication: PRODUCT USED FOR UNKNOWN INDICATION
     Dosage: 5U per day
     Route: 065
     Dates: start: 20100808, end: 20100812
  26. HEPARIN SODIUM [Suspect]
     Indication: PRODUCT USED FOR UNKNOWN INDICATION
     Route: 042
     Dates: start: 20100617
  27. GLYCERIN [Suspect]
     Indication: PRODUCT USED FOR UNKNOWN INDICATION
     Route: 042
     Dates: start: 20100617, end: 20100618
  28. DECADRON [Suspect]
     Indication: PRODUCT USED FOR UNKNOWN INDICATION
     Route: 042
     Dates: start: 20100617, end: 20100622
  29. ATROPINE SULFATE [Suspect]
     Indication: PRODUCT USED FOR UNKNOWN INDICATION
     Dosage: .5MG per day
     Route: 042
     Dates: start: 20100617, end: 20100622
  30. EPINEPHRINE [Suspect]
     Indication: PRODUCT USED FOR UNKNOWN INDICATION
     Dosage: 10MG per day
     Route: 042
     Dates: start: 20100621, end: 20100621
  31. CALCICOL [Suspect]
     Indication: PRODUCT USED FOR UNKNOWN INDICATION
     Dosage: 10ML per day
     Route: 042
     Dates: start: 20100621, end: 20100621
  32. FENTANYL [Suspect]
     Indication: PRODUCT USED FOR UNKNOWN INDICATION
     Route: 042
     Dates: start: 20100621, end: 20100708
  33. CEFAZOLIN [Suspect]
     Indication: PRODUCT USED FOR UNKNOWN INDICATION
     Route: 042
     Dates: start: 20100622, end: 20100624
  34. NICARDIPINE [Suspect]
     Indication: PRODUCT USED FOR UNKNOWN INDICATION
     Route: 065
  35. DEXMEDETOMIDINE HYDROCHLORIDE [Suspect]
     Indication: PRODUCT USED FOR UNKNOWN INDICATION
     Route: 042
     Dates: start: 20100704, end: 20100705
  36. ROCURONIUM BROMIDE [Suspect]
     Indication: PRODUCT USED FOR UNKNOWN INDICATION
     Dosage: 50MG per day
     Route: 042
     Dates: start: 20100617, end: 20100706
  37. XYLOCAINE [Suspect]
     Indication: PRODUCT USED FOR UNKNOWN INDICATION
     Dosage: 10ML per day
     Route: 042
     Dates: start: 20100621, end: 20100709
  38. PANTHENOL [Suspect]
     Indication: PRODUCT USED FOR UNKNOWN INDICATION
     Dosage: 25MG Twice per day
     Route: 042
     Dates: start: 20100604, end: 20100705
  39. ANHIBA [Suspect]
     Indication: PRODUCT USED FOR UNKNOWN INDICATION
     Route: 054
     Dates: start: 20100630, end: 20100716
  40. FLURBIPROFEN [Suspect]
     Indication: PRODUCT USED FOR UNKNOWN INDICATION
     Dosage: 3.5ML per day
     Route: 042
     Dates: start: 20100709, end: 20100709
  41. OFLOXACIN [Suspect]
     Indication: PRODUCT USED FOR UNKNOWN INDICATION
     Route: 047
     Dates: start: 20100728, end: 20100729
  42. HYALEIN [Suspect]
     Indication: PRODUCT USED FOR UNKNOWN INDICATION
     Route: 047
     Dates: start: 20100723, end: 20100821
  43. GLYCERIN [Suspect]
     Indication: CONSTIPATION
     Route: 054
     Dates: start: 20100627

REACTIONS (2)
  - Drug reaction with eosinophilia and systemic symptoms [Recovered/Resolved]
  - Drug reaction with eosinophilia and systemic symptoms [Recovered/Resolved]
